FAERS Safety Report 5162401-6 (Version None)
Quarter: 2006Q4

REPORT INFORMATION
  Report Type: 
  Country: None (occurrence: None)
  Receive Date: 20061128
  Receipt Date: 20061128
  Transmission Date: 20070319
  Serious: Yes (Other)
  Sender: FDA-Public Use
  Company Number: None

PATIENT
  Age: 46 Year
  Sex: Male
  Weight: 101.1521 kg

DRUGS (3)
  1. TRAVAPROST 0.004% [Suspect]
     Indication: GLAUCOMA
     Dosage: ONE DROP EACH EYE QHS
     Route: 047
     Dates: start: 20060705
  2. FLUNISOLIDE NASAL [Concomitant]
  3. ZOCOR [Concomitant]

REACTIONS (2)
  - EYE IRRITATION [None]
  - OCULAR HYPERAEMIA [None]
